FAERS Safety Report 7357136-5 (Version None)
Quarter: 2011Q1

REPORT INFORMATION
  Report Type: 
  Country: None (occurrence: None)
  Receive Date: 20110311
  Receipt Date: 20110311
  Transmission Date: 20110831
  Serious: No
  Sender: FDA-Public Use
  Company Number: None

PATIENT
  Age: 78 Year
  Sex: Male
  Weight: 71 kg

DRUGS (1)
  1. LISINOPRIL [Suspect]
     Dosage: 20 MG EVERY DAY PO
     Route: 048
     Dates: start: 20101124, end: 20101207

REACTIONS (8)
  - PRODUCT QUALITY ISSUE [None]
  - RASH [None]
  - JOINT SWELLING [None]
  - DYSGEUSIA [None]
  - PRODUCT SUBSTITUTION ISSUE [None]
  - CELLULITIS [None]
  - GENERALISED ERYTHEMA [None]
  - GASTROENTERITIS [None]
